FAERS Safety Report 4743969-8 (Version None)
Quarter: 2005Q3

REPORT INFORMATION
  Report Type: 
  Country: None (occurrence: None)
  Receive Date: 20050810
  Receipt Date: 20050810
  Transmission Date: 20060218
  Serious: Yes (Hospitalization)
  Sender: FDA-Public Use
  Company Number: None

PATIENT
  Age: 63 Year
  Sex: Male
  Weight: 104.7809 kg

DRUGS (25)
  1. LEVOFLOXACIN [Suspect]
     Indication: UPPER RESPIRATORY TRACT INFECTION
     Dosage: 500 MG PO QD X 2
     Route: 048
     Dates: start: 20050516
  2. LEVOFLOXACIN [Suspect]
     Indication: UPPER RESPIRATORY TRACT INFECTION
     Dosage: 500 MG PO QD X 2
     Route: 048
     Dates: start: 20050517
  3. ALBUTEROL SULFATE AND IPRATROPIUM BROMIDE [Concomitant]
  4. ATENOLOL [Concomitant]
  5. AZITHROMYCIN [Concomitant]
  6. BACLOFEN [Concomitant]
  7. CARBAMIDE PEROXIDE [Concomitant]
  8. CEFUROXIME AXETIL [Concomitant]
  9. LANOXIN [Concomitant]
  10. DOCUSATE NA [Concomitant]
  11. FERROUS S04 [Concomitant]
  12. FORMOTEROL FUMARATE [Concomitant]
  13. FUROSEMIDE [Concomitant]
  14. GABAPENTIN [Concomitant]
  15. GUAIFENESIN [Concomitant]
  16. HYDROPHILIC OINT [Concomitant]
  17. IPRATROPIUM BROMIDE [Concomitant]
  18. LACTULOSE [Concomitant]
  19. LISINOPRIL [Concomitant]
  20. MULTI-VITAMIN [Concomitant]
  21. NITROGLYCERIN [Concomitant]
  22. OMEPRAZOLE [Concomitant]
  23. POTASSIUM CHLORIDE [Concomitant]
  24. PREDNISONE [Concomitant]
  25. SIMVASTATIN [Concomitant]

REACTIONS (4)
  - HEPATITIS [None]
  - HEPATOCELLULAR DAMAGE [None]
  - HYPERSENSITIVITY [None]
  - URTICARIA GENERALISED [None]
